FAERS Safety Report 13433214 (Version 3)
Quarter: 2017Q2

REPORT INFORMATION
  Report Type: Report from Study
  Country: None (occurrence: DE)
  Receive Date: 20170412
  Receipt Date: 20170524
  Transmission Date: 20170830
  Serious: Yes (Hospitalization)
  Sender: FDA-Public Use
  Company Number: DE-ABBVIE-17P-062-1870463-00

PATIENT
  Age: 67 Year
  Sex: Male

DRUGS (12)
  1. MADOPAR LT [Concomitant]
     Active Substance: BENSERAZIDE HYDROCHLORIDE\LEVODOPA
     Indication: PRODUCT USED FOR UNKNOWN INDICATION
  2. DUODOPA [Suspect]
     Active Substance: CARBIDOPA\LEVODOPA
     Dosage: MD 14 ML / CRD 5.3 ML/H / CRN 5.3 ML/H / ED 7.9 ML
     Route: 050
     Dates: start: 2017, end: 2017
  3. PK-MERZ [Concomitant]
     Active Substance: AMANTADINE
     Indication: PRODUCT USED FOR UNKNOWN INDICATION
  4. DUODOPA [Suspect]
     Active Substance: CARBIDOPA\LEVODOPA
     Dosage: MD 10 ML / CRD 5.3 ML/H / CRN 5.3 ML/H / ED 5.0 ML
     Route: 050
     Dates: start: 2017
  5. PANTOZOL [Concomitant]
     Active Substance: PANTOPRAZOLE SODIUM
     Indication: PRODUCT USED FOR UNKNOWN INDICATION
  6. DUODOPA [Suspect]
     Active Substance: CARBIDOPA\LEVODOPA
     Dosage: MD 14ML, CRD 5.3ML/H, CRN 5.1 ML/H, ED 5ML
     Route: 050
     Dates: start: 2017, end: 2017
  7. DUODOPA [Suspect]
     Active Substance: CARBIDOPA\LEVODOPA
     Dosage: MD 14 ML; CRD 5.3 ML/H; CRN 5.3 ML/H, ED 5 ML
     Route: 050
     Dates: start: 2017, end: 2017
  8. DUODOPA [Suspect]
     Active Substance: CARBIDOPA\LEVODOPA
     Dosage: MD 14ML, CRD 5.3ML/H, CRN 5.3 ML/H, ED 10ML
     Route: 050
     Dates: start: 2017, end: 2017
  9. DUODOPA [Suspect]
     Active Substance: CARBIDOPA\LEVODOPA
     Dosage: MD 14ML, CRD 5.3ML/H, CRN 5.3 ML/H, ED 5ML
     Route: 050
     Dates: start: 2017, end: 2017
  10. QUETIAPIN [Concomitant]
     Active Substance: QUETIAPINE
     Indication: PRODUCT USED FOR UNKNOWN INDICATION
  11. DUODOPA [Suspect]
     Active Substance: CARBIDOPA\LEVODOPA
     Indication: PARKINSON^S DISEASE
     Dosage: MD 14ML, CRD 5.1ML/H, CRN 5.1 ML/H, ED 5ML
     Route: 050
     Dates: start: 20150518, end: 2017
  12. AZILECT [Concomitant]
     Active Substance: RASAGILINE MESYLATE
     Indication: PRODUCT USED FOR UNKNOWN INDICATION

REACTIONS (7)
  - Pain in extremity [Not Recovered/Not Resolved]
  - Hallucination [Not Recovered/Not Resolved]
  - Urinary tract infection [Recovering/Resolving]
  - Confusional state [Not Recovered/Not Resolved]
  - Akinesia [Recovering/Resolving]
  - Anxiety [Not Recovered/Not Resolved]
  - Psychotic behaviour [Not Recovered/Not Resolved]

NARRATIVE: CASE EVENT DATE: 2017
